FAERS Safety Report 15695212 (Version 2)
Quarter: 2020Q3

REPORT INFORMATION
  Report Type: Spontaneous
  Country: PT (occurrence: PT)
  Receive Date: 20181206
  Receipt Date: 20200127
  Transmission Date: 20201104
  Serious: Yes (Life-Threatening, Hospitalization, Other)
  Sender: FDA-Public Use
  Company Number: PT-SYNTHON BV-NL01PV18_47752

PATIENT
  Age: 47 Year
  Sex: Female

DRUGS (5)
  1. ACEMETACIN [Suspect]
     Active Substance: ACEMETACIN
     Indication: ARTHRALGIA
     Dosage: UNK
  2. XYZAL [Suspect]
     Active Substance: LEVOCETIRIZINE DIHYDROCHLORIDE
     Indication: RASH PRURITIC
     Dosage: UNK
  3. ETORICOXIB. [Suspect]
     Active Substance: ETORICOXIB
     Indication: ARTHRALGIA
     Dosage: 2 MILLIGRAM, TWO TIMES A DAY
  4. CEFTRIAXONE. [Suspect]
     Active Substance: CEFTRIAXONE
     Indication: EVIDENCE BASED TREATMENT
     Dosage: UNK
  5. DEFLAZACORT [Suspect]
     Active Substance: DEFLAZACORT
     Indication: RASH PRURITIC
     Dosage: UNK

REACTIONS (1)
  - Toxic epidermal necrolysis [Unknown]
